FAERS Safety Report 11942070 (Version 1)
Quarter: 2016Q1

REPORT INFORMATION
  Report Type: Spontaneous
  Country: US (occurrence: US)
  Receive Date: 20160124
  Receipt Date: 20160124
  Transmission Date: 20160526
  Serious: No
  Sender: FDA-Public Use
  Company Number: US-CELGENEUS-USA-2016013593

PATIENT
  Sex: Male
  Weight: 74.91 kg

DRUGS (1)
  1. THALOMID [Suspect]
     Active Substance: THALIDOMIDE
     Indication: APHTHOUS ULCER
     Dosage: 200 MILLIGRAM
     Route: 048
     Dates: start: 20150924

REACTIONS (1)
  - Adverse drug reaction [Unknown]
